FAERS Safety Report 9028368 (Version 1)
Quarter: 2013Q1

REPORT INFORMATION
  Report Type: Spontaneous
  Country: US (occurrence: US)
  Receive Date: 20130124
  Receipt Date: 20130124
  Transmission Date: 20140127
  Serious: Yes (Hospitalization)
  Sender: FDA-Public Use
  Company Number: US-PFIZER INC-2013028454

PATIENT
  Age: 80 Year
  Sex: Male
  Weight: 86.17 kg

DRUGS (1)
  1. PROCARDIA XL [Suspect]
     Indication: HYPERTENSION
     Dosage: 90 MG, DAILY
     Dates: end: 201301

REACTIONS (1)
  - Myocardial infarction [Unknown]
